FAERS Safety Report 6211228-2 (Version None)
Quarter: 2009Q2

REPORT INFORMATION
  Report Type: 
  Country: None (occurrence: None)
  Receive Date: 20090602
  Receipt Date: 20090525
  Transmission Date: 20091009
  Serious: Yes (Other)
  Sender: FDA-Public Use
  Company Number: BR-BAYER-200824109LA

PATIENT
  Age: 35 Year
  Sex: Female

DRUGS (7)
  1. BETAFERON [Suspect]
     Indication: MULTIPLE SCLEROSIS
     Route: 058
     Dates: start: 20060101
  2. RIVOTRIL [Concomitant]
     Indication: SLEEP DISORDER
     Dosage: 10 DROPS EVERY NIGHT
     Route: 048
  3. RIVOTRIL [Concomitant]
     Dosage: 10 TO 15 GTT
     Route: 048
  4. DIAMOX [Concomitant]
     Indication: INTRACRANIAL PRESSURE INCREASED
     Route: 048
  5. DIAMOX [Concomitant]
     Route: 065
     Dates: start: 20040101
  6. FRONTAL [Concomitant]
     Indication: DRUG USE FOR UNKNOWN INDICATION
     Route: 065
  7. VENLIFT [Concomitant]
     Indication: DRUG USE FOR UNKNOWN INDICATION
     Route: 065

REACTIONS (13)
  - ABDOMINAL PAIN UPPER [None]
  - AFFECTIVE DISORDER [None]
  - AGGRESSION [None]
  - ANXIETY [None]
  - CHEST PAIN [None]
  - DEPRESSED MOOD [None]
  - HAND FRACTURE [None]
  - HOMICIDAL IDEATION [None]
  - INAPPROPRIATE AFFECT [None]
  - INJECTION SITE PAIN [None]
  - PAIN IN EXTREMITY [None]
  - SUICIDAL IDEATION [None]
  - SYNCOPE [None]
